FAERS Safety Report 16033334 (Version 1)
Quarter: 2019Q1

REPORT INFORMATION
  Report Type: Report from Study
  Country: GR (occurrence: GR)
  Receive Date: 20190305
  Receipt Date: 20190305
  Transmission Date: 20190418
  Serious: Yes (Hospitalization)
  Sender: FDA-Public Use
  Company Number: GR-SANIK-2019SA057216AA

PATIENT
  Age: 80 Year
  Sex: Female

DRUGS (4)
  1. ZOMARIST [METFORMIN HYDROCHLORIDE;VILDAGLIPTIN] [Concomitant]
     Indication: DIABETES MELLITUS
  2. CORTISONE [Concomitant]
     Active Substance: CORTISONE\HYDROCORTISONE
  3. CLOPIDOGREL BISULFATE. [Suspect]
     Active Substance: CLOPIDOGREL BISULFATE
     Dosage: UNK, UNK
     Route: 048
  4. LOBIVON [Concomitant]
     Active Substance: NEBIVOLOL HYDROCHLORIDE
     Indication: BLOOD CHOLESTEROL ABNORMAL

REACTIONS (2)
  - Dyspnoea [Unknown]
  - Blood glucose increased [Unknown]
